FAERS Safety Report 19713861 (Version 1)
Quarter: 2021Q3

REPORT INFORMATION
  Report Type: Other
  Country: CA (occurrence: CA)
  Receive Date: 20210818
  Receipt Date: 20210818
  Transmission Date: 20211014
  Serious: Yes (Other)
  Sender: FDA-Public Use
  Company Number: CA-APOTEX-2021AP032102

PATIENT
  Age: 47 Year
  Sex: Male

DRUGS (4)
  1. GABAPENTIN. [Suspect]
     Active Substance: GABAPENTIN
     Indication: PAIN IN EXTREMITY
     Dosage: UNK
     Route: 065
  2. OZANIMOD. [Suspect]
     Active Substance: OZANIMOD
     Dosage: 0.46 MILLIGRAM, QD
     Route: 048
  3. OZANIMOD. [Suspect]
     Active Substance: OZANIMOD
     Indication: RELAPSING-REMITTING MULTIPLE SCLEROSIS
     Dosage: 0.23 MILLIGRAM, Q.O.D.
     Route: 048
  4. OZANIMOD. [Suspect]
     Active Substance: OZANIMOD
     Dosage: 0.92 MILLIGRAM, QD
     Route: 048

REACTIONS (9)
  - Peripheral swelling [Not Recovered/Not Resolved]
  - Dizziness [Not Recovered/Not Resolved]
  - Central nervous system lesion [Not Recovered/Not Resolved]
  - Colitis [Not Recovered/Not Resolved]
  - Acne [Not Recovered/Not Resolved]
  - Axillary pain [Not Recovered/Not Resolved]
  - Frequent bowel movements [Not Recovered/Not Resolved]
  - Renal pain [Not Recovered/Not Resolved]
  - Fatigue [Not Recovered/Not Resolved]
